FAERS Safety Report 8163053-3 (Version None)
Quarter: 2012Q1

REPORT INFORMATION
  Report Type: 
  Country: None (occurrence: None)
  Receive Date: 20120224
  Receipt Date: 20120222
  Transmission Date: 20120608
  Serious: Yes (Hospitalization, Congenital Anomaly)
  Sender: FDA-Public Use
  Company Number: US-GLAXOSMITHKLINE-A0851710A

PATIENT
  Sex: Male
  Weight: 1.8 kg

DRUGS (4)
  1. ALDOMET [Concomitant]
     Indication: HYPERTENSION
     Route: 064
  2. NIFEDIPINE [Concomitant]
     Indication: HYPERTENSION
     Route: 064
  3. PAXIL [Suspect]
     Indication: DEPRESSION
     Route: 064
     Dates: start: 19980101
  4. LABETALOL HCL [Concomitant]
     Indication: HYPERTENSION
     Route: 064

REACTIONS (6)
  - RESPIRATORY SYNCYTIAL VIRUS INFECTION [None]
  - LUNG DISORDER [None]
  - BRONCHIAL HYPERREACTIVITY [None]
  - PERSISTENT FOETAL CIRCULATION [None]
  - BRONCHOPULMONARY DYSPLASIA [None]
  - FOETAL EXPOSURE DURING PREGNANCY [None]
